FAERS Safety Report 9936545 (Version 1)
Quarter: 2014Q1

REPORT INFORMATION
  Report Type: Spontaneous
  Country: US (occurrence: US)
  Receive Date: 20140228
  Receipt Date: 20140228
  Transmission Date: 20141002
  Serious: No
  Sender: FDA-Public Use
  Company Number: US-AMGEN-USASP2014006369

PATIENT
  Age: 41 Year
  Sex: Female

DRUGS (2)
  1. ENBREL [Suspect]
     Indication: RHEUMATOID ARTHRITIS
     Dosage: UNK UNK, QWK
     Route: 065
     Dates: start: 20100501
  2. PLAQUENIL                          /00072602/ [Concomitant]
     Dosage: UNK (6 MONTHS DURATION)

REACTIONS (4)
  - Rheumatoid arthritis [Recovered/Resolved]
  - Breast prosthesis user [Not Recovered/Not Resolved]
  - Drug effect incomplete [Recovered/Resolved]
  - Impaired healing [Not Recovered/Not Resolved]
